FAERS Safety Report 5411105-0 (Version None)
Quarter: 2007Q3

REPORT INFORMATION
  Report Type: 
  Country: None (occurrence: None)
  Receive Date: 20070713
  Receipt Date: 20070713
  Transmission Date: 20080115
  Serious: No
  Sender: FDA-Public Use
  Company Number: 2007SP001415

PATIENT
  Age: 47 Year
  Sex: Female
  Weight: 86.1834 kg

DRUGS (5)
  1. LUNESTA [Suspect]
     Indication: INSOMNIA
     Dosage: 6 MG;1X;ORAL
     Route: 048
     Dates: start: 20070417, end: 20070417
  2. ATORVASTATIN CALCIUM [Concomitant]
  3. CALCIUM [Concomitant]
  4. VITAMIN CAP [Concomitant]
  5. AMBIEN [Concomitant]

REACTIONS (1)
  - SOMNOLENCE [None]
